FAERS Safety Report 13771697 (Version 3)
Quarter: 2017Q3

REPORT INFORMATION
  Report Type: Spontaneous
  Country: US (occurrence: US)
  Receive Date: 20170720
  Receipt Date: 20170901
  Transmission Date: 20171127
  Serious: No
  Sender: FDA-Public Use
  Company Number: US-PFIZER INC-2017313860

PATIENT
  Age: 32 Month
  Sex: Male

DRUGS (2)
  1. JUNIOR STRENGTH ADVIL [Suspect]
     Active Substance: IBUPROFEN
     Indication: PYREXIA
     Dosage: 100MG ONE CHEWABLE 3 TIMES A DAY EVERY 8 HOURS
     Dates: end: 20170715
  2. TYLENOL [Concomitant]
     Active Substance: ACETAMINOPHEN
     Indication: PYREXIA

REACTIONS (4)
  - Throat irritation [Recovered/Resolved]
  - Product taste abnormal [Unknown]
  - Intentional product misuse [Unknown]
  - Dysgeusia [Unknown]

NARRATIVE: CASE EVENT DATE: 20170711
